FAERS Safety Report 15636276 (Version 2)
Quarter: 2018Q4

REPORT INFORMATION
  Report Type: Spontaneous
  Country: US (occurrence: US)
  Receive Date: 20181120
  Receipt Date: 20181205
  Transmission Date: 20190205
  Serious: Yes (Hospitalization)
  Sender: FDA-Public Use
  Company Number: US-ROCHE-2217512

PATIENT
  Sex: Female

DRUGS (11)
  1. BREO ELLIPTA [Concomitant]
     Active Substance: FLUTICASONE FUROATE\VILANTEROL TRIFENATATE
     Route: 065
  2. ALPRAZOLAM. [Concomitant]
     Active Substance: ALPRAZOLAM
     Route: 065
  3. IPRATROPIUM [Concomitant]
     Active Substance: IPRATROPIUM
     Route: 065
  4. PREDNISONE. [Concomitant]
     Active Substance: PREDNISONE
     Route: 065
  5. MUCINEX [Concomitant]
     Active Substance: GUAIFENESIN
     Route: 065
  6. XOLAIR [Suspect]
     Active Substance: OMALIZUMAB
     Indication: ASTHMA
     Dosage: ONGOING:YES
     Route: 058
     Dates: start: 20180822
  7. DILTIAZEM. [Concomitant]
     Active Substance: DILTIAZEM
     Route: 065
  8. ELIQUIS [Concomitant]
     Active Substance: APIXABAN
     Route: 065
  9. HYDROCHLOROTHIAZID [Concomitant]
     Active Substance: HYDROCHLOROTHIAZIDE
     Route: 065
  10. LEVAQUIN [Concomitant]
     Active Substance: LEVOFLOXACIN
     Route: 065
  11. XOLAIR [Suspect]
     Active Substance: OMALIZUMAB
     Route: 058
     Dates: start: 20180822

REACTIONS (1)
  - Pneumonia [Unknown]
